FAERS Safety Report 25008613 (Version 1)
Quarter: 2025Q1

REPORT INFORMATION
  Report Type: Spontaneous
  Country: US (occurrence: US)
  Receive Date: 20250225
  Receipt Date: 20250225
  Transmission Date: 20250408
  Serious: Yes (Death, Hospitalization)
  Sender: MYLAN
  Company Number: US-MYLANLABS-2025M1015712

PATIENT
  Age: 26 Year
  Sex: Male

DRUGS (22)
  1. ETOPOSIDE [Suspect]
     Active Substance: ETOPOSIDE
     Indication: Testicular germ cell tumour
  2. ETOPOSIDE [Suspect]
     Active Substance: ETOPOSIDE
  3. METHOTREXATE [Suspect]
     Active Substance: METHOTREXATE
     Indication: Testicular germ cell tumour
  4. DOXORUBICIN [Suspect]
     Active Substance: DOXORUBICIN
     Indication: Testicular germ cell tumour
  5. GEMCITABINE [Suspect]
     Active Substance: GEMCITABINE
     Indication: Testicular germ cell tumour
  6. DOCETAXEL [Suspect]
     Active Substance: DOCETAXEL
     Indication: Testicular germ cell tumour
  7. MELPHALAN [Suspect]
     Active Substance: MELPHALAN
     Indication: Testicular germ cell tumour
  8. BLEOMYCIN [Suspect]
     Active Substance: BLEOMYCIN SULFATE
     Indication: Testicular germ cell tumour
  9. BLEOMYCIN [Suspect]
     Active Substance: BLEOMYCIN SULFATE
  10. CISPLATIN [Suspect]
     Active Substance: CISPLATIN
     Indication: Testicular germ cell tumour
  11. CISPLATIN [Suspect]
     Active Substance: CISPLATIN
  12. CISPLATIN [Suspect]
     Active Substance: CISPLATIN
  13. CISPLATIN [Suspect]
     Active Substance: CISPLATIN
  14. CISPLATIN [Suspect]
     Active Substance: CISPLATIN
  15. IFOSFAMIDE [Suspect]
     Active Substance: IFOSFAMIDE
     Indication: Testicular germ cell tumour
  16. IFOSFAMIDE [Suspect]
     Active Substance: IFOSFAMIDE
  17. IFOSFAMIDE [Suspect]
     Active Substance: IFOSFAMIDE
  18. PACLITAXEL [Suspect]
     Active Substance: PACLITAXEL
     Indication: Testicular germ cell tumour
  19. PACLITAXEL [Suspect]
     Active Substance: PACLITAXEL
  20. PACLITAXEL [Suspect]
     Active Substance: PACLITAXEL
  21. VINCRISTINE [Suspect]
     Active Substance: VINCRISTINE
     Indication: Testicular germ cell tumour
  22. CARBOPLATIN [Suspect]
     Active Substance: CARBOPLATIN
     Indication: Testicular germ cell tumour

REACTIONS (1)
  - Treatment failure [Fatal]
